FAERS Safety Report 16620691 (Version 2)
Quarter: 2019Q3

REPORT INFORMATION
  Report Type: Report from Study
  Country: TW (occurrence: TW)
  Receive Date: 20190723
  Receipt Date: 20190807
  Transmission Date: 20191004
  Serious: Yes (Hospitalization, Other)
  Sender: FDA-Public Use
  Company Number: TW-BRISTOL-MYERS SQUIBB COMPANY-BMS-2019-055263

PATIENT
  Age: 48 Year
  Sex: Male
  Weight: 82.6 kg

DRUGS (11)
  1. AMLODIPINE [Concomitant]
     Active Substance: AMLODIPINE BESYLATE
     Indication: HYPERTENSION
     Dosage: 5 MILLIGRAM, QD
     Route: 048
     Dates: start: 20181226
  2. BISACODYL. [Concomitant]
     Active Substance: BISACODYL
     Indication: ILEUS
     Dosage: 20 MILLIGRAM, PRN,SUPP
     Route: 065
     Dates: start: 20190527, end: 20190531
  3. NIVOLUMAB [Suspect]
     Active Substance: NIVOLUMAB
     Indication: NON-SMALL CELL LUNG CANCER
     Dosage: 360 MILLIGRAM, Q3WK
     Route: 042
     Dates: start: 20181012
  4. FEXOFENADINE [Concomitant]
     Active Substance: FEXOFENADINE HYDROCHLORIDE
     Indication: PROPHYLAXIS
     Dosage: 180 MILLIGRAM, QD
     Route: 048
     Dates: start: 20181213
  5. BISACODYL. [Concomitant]
     Active Substance: BISACODYL
     Indication: PRODUCT USED FOR UNKNOWN INDICATION
     Dosage: 10 MILLIGRAM,HS
     Route: 048
     Dates: start: 20190527, end: 20190531
  6. MECOBALAMIN [Concomitant]
     Active Substance: METHYLCOBALAMIN
     Indication: NEUROPATHY PERIPHERAL
     Dosage: 500 MILLIGRAM, TID
     Route: 048
     Dates: start: 20181204
  7. MOSAPRIDE [Concomitant]
     Active Substance: MOSAPRIDE
     Indication: ILEUS
     Dosage: 5 MILLIGRAM, TID
     Route: 048
     Dates: start: 20190527, end: 20190531
  8. DIMETHICONE. [Concomitant]
     Active Substance: DIMETHICONE
     Indication: ILEUS
     Dosage: 80 MILLIGRAM, TID
     Route: 048
     Dates: start: 20190527, end: 20190531
  9. CARBOPLATIN. [Suspect]
     Active Substance: CARBOPLATIN
     Indication: NON-SMALL CELL LUNG CANCER
     Dosage: 698 MILLIGRAM, Q3WK
     Route: 065
     Dates: start: 20181012, end: 20190201
  10. PACLITAXEL. [Suspect]
     Active Substance: PACLITAXEL
     Indication: NON-SMALL CELL LUNG CANCER
     Dosage: 388 MILLIGRAM, Q3WK
     Route: 065
     Dates: start: 20181012, end: 20190201
  11. ESOMEPRAZOLE. [Concomitant]
     Active Substance: ESOMEPRAZOLE MAGNESIUM
     Indication: GASTROOESOPHAGEAL REFLUX DISEASE
     Dosage: 40 MILLIGRAM, QD
     Route: 048
     Dates: start: 20190602

REACTIONS (1)
  - Gastrointestinal carcinoma [Recovered/Resolved]

NARRATIVE: CASE EVENT DATE: 20190507
